FAERS Safety Report 6748035-8 (Version None)
Quarter: 2010Q2

REPORT INFORMATION
  Report Type: 
  Country: None (occurrence: None)
  Receive Date: 20100531
  Receipt Date: 20100517
  Transmission Date: 20101027
  Serious: Yes (Other)
  Sender: FDA-Public Use
  Company Number: US-ASTRAZENECA-2009SE15920

PATIENT
  Sex: Female

DRUGS (4)
  1. SEROQUEL [Suspect]
     Dosage: 100 MG TO 200 MG
     Route: 048
     Dates: start: 20050101
  2. ATIVAN [Concomitant]
     Dates: start: 20050801
  3. WELLBUTRIN [Concomitant]
     Dates: start: 20051014
  4. ROZEREM [Concomitant]
     Dates: start: 20051027

REACTIONS (2)
  - DIABETES MELLITUS [None]
  - DIABETIC NEUROPATHY [None]
